FAERS Safety Report 6560434-6 (Version None)
Quarter: 2010Q1

REPORT INFORMATION
  Report Type: 
  Country: None (occurrence: None)
  Receive Date: 20100129
  Receipt Date: 20090924
  Transmission Date: 20100710
  Serious: No
  Sender: FDA-Public Use
  Company Number: US-ABBOTT-09P-163-0599192-00

PATIENT
  Sex: Male
  Weight: 75.364 kg

DRUGS (7)
  1. HUMIRA [Suspect]
     Indication: PSORIASIS
     Dates: start: 20090902
  2. HUMIRA [Suspect]
     Indication: PSORIATIC ARTHROPATHY
  3. CLOVEX LOTION [Concomitant]
     Indication: PRURITUS
  4. LASIX [Concomitant]
     Indication: OEDEMA PERIPHERAL
  5. UNKNOWN MEDICATION [Concomitant]
     Indication: DIZZINESS
  6. LORAZEPAM [Concomitant]
     Indication: ANXIETY
     Dosage: 0.5 MG
  7. UNKNOWN BLOOD PRESSURE MEDICATION [Concomitant]
     Indication: HYPERTENSION

REACTIONS (1)
  - WRONG TECHNIQUE IN DRUG USAGE PROCESS [None]
